FAERS Safety Report 23267208 (Version 2)
Quarter: 2023Q4

REPORT INFORMATION
  Report Type: Report from Study
  Country: US (occurrence: US)
  Receive Date: 20231206
  Receipt Date: 20231214
  Transmission Date: 20240110
  Serious: Yes (Other)
  Sender: FDA-Public Use
  Company Number: US-MYLANLABS-2023M1127180

PATIENT
  Age: 0 Year
  Sex: Male
  Weight: 1.3 kg

DRUGS (9)
  1. SILDENAFIL [Suspect]
     Active Substance: SILDENAFIL
     Indication: Bronchopulmonary dysplasia
     Dosage: 0.6 MILLIGRAM, BID
     Dates: start: 20231103, end: 20231105
  2. SILDENAFIL [Suspect]
     Active Substance: SILDENAFIL
     Dosage: 1.3 MILLIGRAM, BID
     Dates: start: 20231105, end: 20231107
  3. SILDENAFIL [Suspect]
     Active Substance: SILDENAFIL
     Dosage: 2 MILLIGRAM, BID
     Dates: start: 20231107, end: 20231109
  4. SILDENAFIL [Suspect]
     Active Substance: SILDENAFIL
     Dosage: 2.6 MILLIGRAM, BID
     Dates: start: 20231109, end: 20231113
  5. SILDENAFIL [Suspect]
     Active Substance: SILDENAFIL
     Dosage: 3 MILLIGRAM, BID
     Dates: start: 20231113, end: 20231119
  6. SILDENAFIL [Suspect]
     Active Substance: SILDENAFIL
     Dosage: 3.5 MILLIGRAM, BID
     Dates: start: 20231120
  7. CAFFEINE [Concomitant]
     Active Substance: CAFFEINE
     Indication: Apnoea
     Dosage: 1 DOSAGE FORM, QD (1 IN 1 DAYS) START DATE: UNKNOWN DATE IN 2023
     Dates: start: 2023
  8. VITAMIN D3 [Concomitant]
     Active Substance: CHOLECALCIFEROL
     Indication: Nutritional supplementation
     Dosage: 1 DOSAGE FORM, QD (1 IN 1 DAYS) START DATE: UNKNOWN DATE IN 2023
     Dates: start: 2023
  9. FERROUS SULFATE [Concomitant]
     Active Substance: FERROUS SULFATE
     Indication: Nutritional supplementation
     Dosage: 1 DOSAGE FORM, QD (1 IN 1 DAYS) START DATE: UNKNOWN DATE IN 2023
     Dates: start: 2023

REACTIONS (2)
  - Apnoea [Recovering/Resolving]
  - Urinary tract infection enterococcal [Recovered/Resolved]

NARRATIVE: CASE EVENT DATE: 20231122
